FAERS Safety Report 23259364 (Version 2)
Quarter: 2023Q4

REPORT INFORMATION
  Report Type: Spontaneous
  Country: JP (occurrence: None)
  Receive Date: 20231204
  Receipt Date: 20231215
  Transmission Date: 20240110
  Serious: Yes (Other)
  Sender: FDA-Public Use
  Company Number: 2023A273868

PATIENT

DRUGS (1)
  1. ONGLYZA [Suspect]
     Active Substance: SAXAGLIPTIN HYDROCHLORIDE
     Indication: Diabetes mellitus
     Dosage: 5 MG THE DATE OF INITIATION OF ONGLYZA WAS UNKNOWN. NO CHANGE WAS MADE TO THE TREATMENT BECAUSE T...
     Route: 048

REACTIONS (2)
  - Dementia [Unknown]
  - Wrong technique in product usage process [Unknown]
